FAERS Safety Report 7921338-7 (Version None)
Quarter: 2011Q4

REPORT INFORMATION
  Report Type: 
  Country: None (occurrence: None)
  Receive Date: 20111117
  Receipt Date: 20111107
  Transmission Date: 20120403
  Serious: Yes (Hospitalization)
  Sender: FDA-Public Use
  Company Number: US-ABBOTT-11P-163-0850572-00

PATIENT
  Sex: Female
  Weight: 104.87 kg

DRUGS (12)
  1. METHOTREXATE [Concomitant]
     Indication: PRODUCT USED FOR UNKNOWN INDICATION
     Dosage: SIX PILLS WEEKLY
  2. VESICARE [Concomitant]
     Indication: URINARY INCONTINENCE
  3. FOLIC ACID [Concomitant]
  4. PREMPRO [Concomitant]
     Indication: HOT FLUSH
     Dosage: 0.3/1.5MG DAILY
  5. VIT D2 [Concomitant]
     Indication: PRODUCT USED FOR UNKNOWN INDICATION
  6. PANTOPRAZOLE [Concomitant]
     Indication: GASTROOESOPHAGEAL REFLUX DISEASE
  7. LISINOPRIL HCTZ 10 [Concomitant]
     Indication: HYPERTENSION
     Dosage: 10-125MG DAILY
  8. OCEAN SPRAY [Concomitant]
     Indication: NASAL CONGESTION
     Dosage: PRN
  9. HUMIRA [Suspect]
     Dates: start: 20110401, end: 20111102
  10. FOLIC ACID [Concomitant]
     Indication: PRODUCT USED FOR UNKNOWN INDICATION
     Dates: start: 20111013
  11. HUMIRA [Suspect]
     Indication: RHEUMATOID ARTHRITIS
     Dates: start: 20110401, end: 20110401
  12. HUMIRA [Suspect]
     Dates: start: 20110808, end: 20110901

REACTIONS (12)
  - OEDEMA PERIPHERAL [None]
  - HEADACHE [None]
  - ASTHENIA [None]
  - FLUID RETENTION [None]
  - NECK PAIN [None]
  - HYPERTENSION [None]
  - GAIT DISTURBANCE [None]
  - VENOUS INSUFFICIENCY [None]
  - PAIN [None]
  - UNEVALUABLE EVENT [None]
  - FLUID OVERLOAD [None]
  - DRUG DOSE OMISSION [None]
